FAERS Safety Report 20852352 (Version 1)
Quarter: 2022Q2

REPORT INFORMATION
  Report Type: Report from Study
  Country: JP (occurrence: JP)
  Receive Date: 20220520
  Receipt Date: 20220520
  Transmission Date: 20220720
  Serious: Yes (Other)
  Sender: FDA-Public Use
  Company Number: JP-TAKEDA-2022TJP048271

PATIENT

DRUGS (1)
  1. BRIGATINIB [Suspect]
     Active Substance: BRIGATINIB
     Indication: Non-small cell lung cancer
     Dosage: UNK
     Route: 065

REACTIONS (15)
  - Platelet count decreased [Unknown]
  - Neutrophil count decreased [Unknown]
  - Amylase increased [Unknown]
  - Diarrhoea [Unknown]
  - Hyperglycaemia [Unknown]
  - Pneumonitis [Unknown]
  - Blood creatine phosphokinase increased [Unknown]
  - Blood creatine phosphokinase increased [Unknown]
  - Blood creatine phosphokinase increased [Unknown]
  - Hyperkalaemia [Unknown]
  - Hypokalaemia [Unknown]
  - Ileus [Unknown]
  - Cardiac failure [Unknown]
  - Pneumonia [Unknown]
  - Lipase increased [Unknown]
